FAERS Safety Report 5827562-1 (Version None)
Quarter: 2008Q2

REPORT INFORMATION
  Report Type: 
  Country: None (occurrence: None)
  Receive Date: 20080601
  Receipt Date: 20080206
  Transmission Date: 20081010
  Serious: No
  Sender: FDA-Public Use
  Company Number: US200802001851

PATIENT
  Age: 62 Year
  Sex: Female
  Weight: 106.6 kg

DRUGS (10)
  1. BYETTA [Suspect]
     Indication: TYPE 2 DIABETES MELLITUS
     Dosage: 5 UG, 2/D, SUBCUTANEOUS
     Route: 058
     Dates: start: 20071001
  2. EXENATIDE UNK STRENGTH PEN, DISPOSABLE DEVICE (EXENATIDE PEN (UNKNOWN [Concomitant]
  3. METFORMIN HCL [Concomitant]
  4. PROTONIX [Concomitant]
  5. HYZAAR [Concomitant]
  6. CELEXA [Concomitant]
  7. MOBIC [Concomitant]
  8. CRESTOR [Concomitant]
  9. ZANTAC [Concomitant]
  10. ZETIA [Concomitant]

REACTIONS (3)
  - LIPASE INCREASED [None]
  - NIGHT SWEATS [None]
  - WEIGHT DECREASED [None]
